FAERS Safety Report 21396044 (Version 1)
Quarter: 2022Q3

REPORT INFORMATION
  Report Type: Spontaneous
  Country: US (occurrence: None)
  Receive Date: 20220929
  Receipt Date: 20220929
  Transmission Date: 20221027
  Serious: Yes (Other)
  Sender: FDA-Public Use
  Company Number: None

PATIENT
  Age: 47 Year
  Sex: Female
  Weight: 201.37 kg

DRUGS (2)
  1. DAPTOMYCIN [Suspect]
     Active Substance: DAPTOMYCIN
     Indication: Cellulitis
     Dosage: FREQUENCY : DAILY;?
     Route: 042
     Dates: start: 20220825, end: 20220906
  2. CEFEPIME [Suspect]
     Active Substance: CEFEPIME HYDROCHLORIDE
     Indication: Cellulitis
     Dosage: FREQUENCY : DAILY;?
     Route: 042
     Dates: start: 20220825, end: 20220906

REACTIONS (7)
  - Infusion related hypersensitivity reaction [None]
  - Drug hypersensitivity [None]
  - Dyspnoea [None]
  - Pruritus [None]
  - Urticaria [None]
  - Wheezing [None]
  - Rash [None]

NARRATIVE: CASE EVENT DATE: 20220906
